FAERS Safety Report 21492128 (Version 1)
Quarter: 2022Q4

REPORT INFORMATION
  Report Type: Spontaneous
  Country: US (occurrence: None)
  Receive Date: 20221020
  Receipt Date: 20221020
  Transmission Date: 20230113
  Serious: Yes (Hospitalization)
  Sender: FDA-Public Use
  Company Number: None

PATIENT
  Age: 23 Year
  Sex: Female
  Weight: 40 kg

DRUGS (9)
  1. CLOZAPINE [Suspect]
     Active Substance: CLOZAPINE
     Dosage: FREQUENCY : DAILY;?
     Route: 048
     Dates: end: 20221019
  2. DIVALPROEX SODIUM [Concomitant]
     Active Substance: DIVALPROEX SODIUM
  3. GABAPENTIN [Concomitant]
     Active Substance: GABAPENTIN
  4. Lithium 600mg [Concomitant]
  5. LORAZEPAM [Concomitant]
     Active Substance: LORAZEPAM
  6. Prazosin 1mg [Concomitant]
  7. TOPIRAMATE [Concomitant]
     Active Substance: TOPIRAMATE
  8. TRAZODONE [Concomitant]
     Active Substance: TRAZODONE HYDROCHLORIDE
  9. HYDROXYZINE [Concomitant]
     Active Substance: HYDROXYZINE HYDROCHLORIDE

REACTIONS (7)
  - Suicidal ideation [None]
  - Chest pain [None]
  - Oxygen saturation decreased [None]
  - Electrocardiogram T wave inversion [None]
  - Troponin increased [None]
  - Myopericarditis [None]
  - Chest discomfort [None]

NARRATIVE: CASE EVENT DATE: 20221018
